FAERS Safety Report 20354309 (Version 10)
Quarter: 2022Q3

REPORT INFORMATION
  Report Type: Report from Study
  Country: US (occurrence: US)
  Receive Date: 20220120
  Receipt Date: 20220716
  Transmission Date: 20221027
  Serious: Yes (Disabling, Other)
  Sender: FDA-Public Use
  Company Number: US-NOVARTISTESTPH-NVSC2022US010119

PATIENT
  Sex: Female

DRUGS (3)
  1. ENTRESTO [Suspect]
     Active Substance: SACUBITRIL\VALSARTAN
     Indication: Product used for unknown indication
     Dosage: 1 DOSAGE FORM (24/26 MG), BID
     Route: 048
     Dates: start: 2019
  2. ASPIRIN [Concomitant]
     Active Substance: ASPIRIN
     Indication: Product used for unknown indication
     Dosage: UNK
     Route: 065
  3. LEXAPRO [Concomitant]
     Active Substance: ESCITALOPRAM OXALATE
     Indication: Product used for unknown indication
     Dosage: UNK
     Route: 065

REACTIONS (16)
  - COVID-19 [Not Recovered/Not Resolved]
  - Cough [Unknown]
  - Fatigue [Recovering/Resolving]
  - Palpitations [Unknown]
  - Syncope [Unknown]
  - Malaise [Unknown]
  - Pyrexia [Not Recovered/Not Resolved]
  - Chills [Unknown]
  - Pain [Unknown]
  - Hypoglycaemia [Unknown]
  - Glycosylated haemoglobin decreased [Unknown]
  - Panic attack [Unknown]
  - Depression [Unknown]
  - Tendonitis [Unknown]
  - Anxiety [Unknown]
  - Arthritis [Unknown]

NARRATIVE: CASE EVENT DATE: 20200101
